FAERS Safety Report 13466479 (Version 1)
Quarter: 2017Q2

REPORT INFORMATION
  Report Type: Report from Study
  Country: AU (occurrence: AU)
  Receive Date: 20170421
  Receipt Date: 20170421
  Transmission Date: 20170830
  Serious: Yes (Life-Threatening)
  Sender: FDA-Public Use
  Company Number: AU-CELGENEUS-AUS-20170400610

PATIENT
  Age: 76 Year
  Sex: Female

DRUGS (29)
  1. ABRAXANE [Suspect]
     Active Substance: PACLITAXEL
     Indication: TRANSITIONAL CELL CARCINOMA
     Dosage: 260 MILLIGRAM/SQ. METER
     Route: 041
     Dates: start: 20150520
  2. ESOMEPRAZOLE [Concomitant]
     Active Substance: ESOMEPRAZOLE
     Indication: GASTROOESOPHAGEAL REFLUX DISEASE
  3. MACROGOL 3350 [Concomitant]
     Active Substance: POLYETHYLENE GLYCOL 3350
     Indication: CONSTIPATION
     Route: 065
     Dates: start: 20150526
  4. MORPHINE [Concomitant]
     Active Substance: MORPHINE
     Indication: TUMOUR PAIN
     Route: 065
     Dates: start: 20150601
  5. CARBOPLATIN. [Concomitant]
     Active Substance: CARBOPLATIN
     Indication: METASTATIC NEOPLASM
     Route: 065
     Dates: start: 20150204, end: 20150408
  6. ESOMEPRAZOLE [Concomitant]
     Active Substance: ESOMEPRAZOLE
     Indication: DYSPEPSIA
  7. XYLOCAINE [Concomitant]
     Active Substance: LIDOCAINE HYDROCHLORIDE
     Indication: MUCOSAL INFLAMMATION
     Route: 065
     Dates: start: 20150526
  8. COCAINE [Concomitant]
     Active Substance: COCAINE
     Indication: MUCOSAL INFLAMMATION
     Route: 065
     Dates: start: 20150526
  9. DOCUSATE WITH SENNA [Concomitant]
     Indication: CONSTIPATION
     Route: 065
     Dates: start: 20150526
  10. SODIUM CHLORIDE. [Concomitant]
     Active Substance: SODIUM CHLORIDE
     Indication: CONSTIPATION PROPHYLAXIS
  11. BENZYDAMINE HYDROCHLORIDE [Concomitant]
     Active Substance: BENZYDAMINE HYDROCHLORIDE
     Indication: MUCOSAL INFLAMMATION
     Route: 065
     Dates: start: 20150526
  12. PREDNISOLONE. [Concomitant]
     Active Substance: PREDNISOLONE
     Indication: INCREASED APPETITE
     Route: 065
     Dates: start: 201503, end: 20150520
  13. PREGABALIN. [Concomitant]
     Active Substance: PREGABALIN
     Indication: NEURALGIA
  14. LIGNOCAINE [Concomitant]
     Active Substance: LIDOCAINE HYDROCHLORIDE
     Indication: MUCOSAL INFLAMMATION
     Route: 065
     Dates: start: 20150526
  15. GEMCITABINE [Concomitant]
     Active Substance: GEMCITABINE\GEMCITABINE HYDROCHLORIDE
     Indication: METASTATIC NEOPLASM
     Route: 065
     Dates: start: 20150204, end: 20150415
  16. ESOMEPRAZOLE [Concomitant]
     Active Substance: ESOMEPRAZOLE
     Indication: DYSPEPSIA
     Route: 065
     Dates: start: 2010
  17. PARACETAMOL [Concomitant]
     Active Substance: ACETAMINOPHEN
     Indication: TUMOUR PAIN
     Route: 065
     Dates: start: 201501
  18. DICHLOROB [Concomitant]
     Indication: MUCOSAL INFLAMMATION
     Route: 065
     Dates: start: 20150526
  19. SODIUM BICARBONATE. [Concomitant]
     Active Substance: SODIUM BICARBONATE
     Indication: CONSTIPATION
     Route: 065
     Dates: start: 20150526
  20. PREGABALIN. [Concomitant]
     Active Substance: PREGABALIN
     Indication: NEURALGIA
     Route: 065
     Dates: start: 201501
  21. OXYCODONE [Concomitant]
     Active Substance: OXYCODONE
     Indication: TUMOUR PAIN
     Route: 065
     Dates: start: 20150506
  22. PIPERACILLIN AND TAZOBACTAM [Concomitant]
     Active Substance: PIPERACILLIN SODIUM\TAZOBACTAM SODIUM
     Indication: FEBRILE NEUTROPENIA
     Route: 065
     Dates: start: 20150528, end: 20150602
  23. DOCUSATE WITH SENNA [Concomitant]
     Indication: CONSTIPATION PROPHYLAXIS
  24. MACROGOL 3350 [Concomitant]
     Active Substance: POLYETHYLENE GLYCOL 3350
     Indication: CONSTIPATION PROPHYLAXIS
  25. SODIUM BICARBONATE. [Concomitant]
     Active Substance: SODIUM BICARBONATE
     Indication: CONSTIPATION PROPHYLAXIS
  26. DEXAMETHASONE. [Concomitant]
     Active Substance: DEXAMETHASONE
     Indication: ANTIINFLAMMATORY THERAPY
     Route: 065
     Dates: start: 20150521
  27. ESOMEPRAZOLE [Concomitant]
     Active Substance: ESOMEPRAZOLE
     Indication: GASTROOESOPHAGEAL REFLUX DISEASE
  28. NYSTATIN. [Concomitant]
     Active Substance: NYSTATIN
     Indication: ANTIFUNGAL PROPHYLAXIS
     Route: 065
     Dates: start: 20150526
  29. SODIUM CHLORIDE. [Concomitant]
     Active Substance: SODIUM CHLORIDE
     Indication: CONSTIPATION
     Route: 065
     Dates: start: 20150526

REACTIONS (1)
  - Febrile neutropenia [Recovered/Resolved]

NARRATIVE: CASE EVENT DATE: 20150528
